FAERS Safety Report 4733513-3 (Version None)
Quarter: 2005Q3

REPORT INFORMATION
  Report Type: 
  Country: None (occurrence: None)
  Receive Date: 20050803
  Receipt Date: 20050719
  Transmission Date: 20060218
  Serious: Yes (Hospitalization)
  Sender: FDA-Public Use
  Company Number: FR-JNJFOC-20050800974

PATIENT
  Age: 70 Year
  Sex: Male

DRUGS (11)
  1. IBUPROFEN [Suspect]
     Indication: PERIODONTAL INFECTION
     Dosage: 200 MG TID PRN
     Route: 048
  2. ALODONT [Suspect]
     Route: 002
  3. ALODONT [Suspect]
     Route: 002
  4. ALODONT [Suspect]
     Route: 002
  5. ALODONT [Suspect]
     Indication: PERIODONTAL INFECTION
     Route: 002
  6. BIRODOGYL [Suspect]
     Route: 048
  7. BIRODOGYL [Suspect]
     Indication: PERIODONTAL INFECTION
     Route: 048
  8. ZANIDIP [Concomitant]
  9. ODRIK [Concomitant]
  10. ACE INHIBITOR [Concomitant]
  11. UNSPECIFIED MEDICATION [Concomitant]

REACTIONS (3)
  - ASTHENIA [None]
  - DIARRHOEA [None]
  - NAUSEA [None]
